FAERS Safety Report 5609035-4 (Version None)
Quarter: 2008Q1

REPORT INFORMATION
  Report Type: 
  Country: None (occurrence: None)
  Receive Date: 20080131
  Receipt Date: 20080117
  Transmission Date: 20080703
  Serious: Yes (Hospitalization)
  Sender: FDA-Public Use
  Company Number: US-AMGEN-QUU255628

PATIENT
  Sex: Female

DRUGS (5)
  1. ENBREL [Suspect]
     Indication: RHEUMATOID ARTHRITIS
     Route: 058
     Dates: start: 20001101
  2. METHOTREXATE [Concomitant]
     Dates: start: 20000101
  3. ASPIRIN [Concomitant]
  4. NEXIUM [Concomitant]
  5. PREDNISONE TAB [Concomitant]

REACTIONS (5)
  - ANGINA UNSTABLE [None]
  - CARDIAC MURMUR [None]
  - DYSPNOEA EXERTIONAL [None]
  - INJECTION SITE PAIN [None]
  - TRANSIENT ISCHAEMIC ATTACK [None]
